FAERS Safety Report 5129608-5 (Version None)
Quarter: 2006Q4

REPORT INFORMATION
  Report Type: 
  Country: None (occurrence: None)
  Receive Date: 20061012
  Receipt Date: 20061004
  Transmission Date: 20070319
  Serious: Yes (Other)
  Sender: FDA-Public Use
  Company Number: 230750

PATIENT
  Age: 68 Year
  Sex: Female
  Weight: 111.1 kg

DRUGS (14)
  1. XOLAIR [Suspect]
     Indication: ASTHMA
     Dosage: 300 MG, Q4W, SUBCUTANEOUS
     Route: 058
     Dates: start: 20060213, end: 20060830
  2. ADVAIR HFA [Concomitant]
     Indication: ASTHMA
  3. SINGULAIR [Concomitant]
  4. XOPENEX (LEVALBUTAMOL HYDROCHLORIDE) [Concomitant]
  5. NASACORT [Concomitant]
  6. ASTELIN [Concomitant]
  7. OPTIVAR (AZELASTINE HYDROCHLORIDE) [Concomitant]
  8. INSULIN (INSULIN) [Concomitant]
  9. CATAPRES [Concomitant]
  10. LASIX [Concomitant]
  11. PROTONIX [Concomitant]
  12. DITROPAN [Concomitant]
  13. EYE DROPS (EYE DROPS NOS) [Concomitant]
  14. IRON (IRON NOS) [Concomitant]

REACTIONS (1)
  - RHEUMATOID ARTHRITIS [None]
